FAERS Safety Report 6332463-9 (Version None)
Quarter: 2009Q3

REPORT INFORMATION
  Report Type: 
  Country: None (occurrence: None)
  Receive Date: 20090828
  Receipt Date: 20090819
  Transmission Date: 20100115
  Serious: Yes (Other)
  Sender: FDA-Public Use
  Company Number: GB-AMGEN-QUU360962

PATIENT
  Sex: Female

DRUGS (4)
  1. NEULASTA [Suspect]
     Indication: CHEMOTHERAPY
     Route: 065
     Dates: start: 20090813
  2. FLUOROURACIL [Concomitant]
     Dates: start: 20090812
  3. EPIRUBICIN [Concomitant]
     Dates: start: 20090812
  4. CYCLOPHOSPHAMIDE [Concomitant]
     Dates: start: 20090812

REACTIONS (3)
  - DRUG INEFFECTIVE [None]
  - NEUTROPHIL COUNT DECREASED [None]
  - WHITE BLOOD CELL COUNT DECREASED [None]
